FAERS Safety Report 4563992-6 (Version None)
Quarter: 2005Q1

REPORT INFORMATION
  Report Type: 
  Country: None (occurrence: None)
  Receive Date: 20050128
  Receipt Date: 20050117
  Transmission Date: 20050727
  Serious: Yes (Hospitalization)
  Sender: FDA-Public Use
  Company Number: AU-JNJFOC-20040803520

PATIENT
  Age: 76 Year
  Sex: Female

DRUGS (7)
  1. TRAMADOL HCL [Suspect]
     Indication: PAIN MANAGEMENT
     Route: 065
  2. CIPRAMIL [Interacting]
     Indication: DRUG USE FOR UNKNOWN INDICATION
     Route: 049
  3. PERINDOPRIL [Concomitant]
     Dosage: DOSE TAKEN IN THE AM
  4. QUININE SULFATE [Concomitant]
     Dosage: DOSE TAKEN AT NIGHT
  5. RANITIDINE [Concomitant]
     Dosage: DOSE TAKEN AT NIGHT
  6. CALCIUM CARBONATE [Concomitant]
     Dosage: DOSE TAKEN AT NIGHT
  7. RISEDRONATE [Concomitant]

REACTIONS (4)
  - BLOOD OSMOLARITY DECREASED [None]
  - BLOOD SODIUM DECREASED [None]
  - DRUG INTERACTION [None]
  - HYPONATRAEMIA [None]
